FAERS Safety Report 8563192 (Version 2)
Quarter: 2013Q3

REPORT INFORMATION
  Report Type: Spontaneous
  Country: US (occurrence: US)
  Receive Date: 20120515
  Receipt Date: 20130716
  Transmission Date: 20140515
  Serious: Yes (Hospitalization)
  Sender: FDA-Public Use
  Company Number: US-BAYER-2012-044742

PATIENT
  Age: 52 Year
  Sex: Female

DRUGS (3)
  1. BETASERON [Suspect]
  2. AVONEX [Concomitant]
     Dosage: UNK
     Dates: start: 19990119
  3. AVONEX [Concomitant]
     Dosage: 30 ?G, OW
     Route: 030
     Dates: start: 20120412

REACTIONS (2)
  - Blister [Recovered/Resolved]
  - Drug hypersensitivity [Recovered/Resolved]
